FAERS Safety Report 9781531 (Version 3)
Quarter: 2014Q1

REPORT INFORMATION
  Report Type: Spontaneous
  Country: PT (occurrence: PT)
  Receive Date: 20131224
  Receipt Date: 20140319
  Transmission Date: 20141002
  Serious: Yes (Other)
  Sender: FDA-Public Use
  Company Number: PT-BRISTOL-MYERS SQUIBB COMPANY-19869882

PATIENT
  Age: 67 Year
  Sex: Male
  Weight: 70 kg

DRUGS (14)
  1. RISIDON [Suspect]
     Indication: TYPE 2 DIABETES MELLITUS
     Route: 048
     Dates: start: 2008, end: 20131030
  2. GLYCERYL TRINITRATE [Concomitant]
     Indication: TYPE 2 DIABETES MELLITUS
     Route: 062
     Dates: start: 20111031
  3. LOPRESSOR [Concomitant]
     Indication: TYPE 2 DIABETES MELLITUS
     Route: 048
     Dates: start: 20120301
  4. HYPERIUM [Concomitant]
     Indication: TYPE 2 DIABETES MELLITUS
     Route: 048
     Dates: start: 20130301
  5. ALDACTONE [Concomitant]
     Indication: TYPE 2 DIABETES MELLITUS
     Route: 048
     Dates: start: 20130329
  6. HYGROTON [Concomitant]
     Indication: TYPE 2 DIABETES MELLITUS
     Route: 048
     Dates: start: 20120225
  7. ASPIRIN [Concomitant]
     Indication: TYPE 2 DIABETES MELLITUS
     Route: 048
     Dates: start: 2012
  8. GLICLAZIDE [Concomitant]
     Indication: TYPE 2 DIABETES MELLITUS
     Route: 048
     Dates: start: 20121217
  9. SIMVASTATIN [Concomitant]
     Indication: TYPE 2 DIABETES MELLITUS
     Route: 048
     Dates: start: 20111031
  10. CLOXACILLIN [Concomitant]
     Indication: TYPE 2 DIABETES MELLITUS
     Route: 048
     Dates: start: 2006
  11. BROMAZEPAM [Concomitant]
     Indication: TYPE 2 DIABETES MELLITUS
     Route: 048
     Dates: start: 2006
  12. PENTOXIFYLLINE [Concomitant]
     Indication: TYPE 2 DIABETES MELLITUS
     Route: 048
  13. OMEPRAZOLE [Concomitant]
     Indication: TYPE 2 DIABETES MELLITUS
     Route: 048
     Dates: start: 201102
  14. AMLODIPINE BESYLATE [Concomitant]
     Indication: TYPE 2 DIABETES MELLITUS
     Route: 048
     Dates: start: 201105

REACTIONS (1)
  - Blood creatinine increased [Not Recovered/Not Resolved]
